FAERS Safety Report 4365355-5 (Version None)
Quarter: 2004Q2

REPORT INFORMATION
  Report Type: 
  Country: None (occurrence: None)
  Receive Date: 20040525
  Receipt Date: 20040505
  Transmission Date: 20050107
  Serious: Yes (Other)
  Sender: FDA-Public Use
  Company Number: A0509920A

PATIENT
  Age: 20 Year
  Sex: Female

DRUGS (1)
  1. PAXIL [Suspect]
     Indication: STOMACH DISCOMFORT
     Dosage: 20 MG ORAL
     Route: 048
     Dates: start: 20010101

REACTIONS (18)
  - ANXIETY [None]
  - CRYING [None]
  - DIARRHOEA [None]
  - DRUG EFFECT DECREASED [None]
  - DYSGEUSIA [None]
  - DYSSTASIA [None]
  - HYPERHIDROSIS [None]
  - IMPAIRED WORK ABILITY [None]
  - INFLUENZA [None]
  - INSOMNIA [None]
  - NAUSEA [None]
  - PARAESTHESIA [None]
  - PHARYNGITIS STREPTOCOCCAL [None]
  - SINUSITIS [None]
  - SUICIDAL IDEATION [None]
  - TREMOR [None]
  - ULCER [None]
  - VERTIGO [None]
